FAERS Safety Report 6764571-2 (Version None)
Quarter: 2010Q2

REPORT INFORMATION
  Report Type: 
  Country: None (occurrence: None)
  Receive Date: 20100610
  Receipt Date: 20100108
  Transmission Date: 20101027
  Serious: No
  Sender: FDA-Public Use
  Company Number: US-TYCO HEALTHCARE/MALLINCKRODT-T201000078

PATIENT
  Age: 12 Year
  Sex: Female

DRUGS (10)
  1. OCTREOSCAN [Suspect]
     Indication: SOMATOSTATIN RECEPTOR SCAN
     Dosage: 6 MCI, UNK
     Dates: start: 20100106, end: 20100106
  2. OCTREOTIDE ACETATE [Concomitant]
     Dosage: 500 ?G, BID
     Route: 050
  3. PREVACID [Concomitant]
     Dosage: 30 MG, BID
  4. SUPRAX                             /00821801/ [Concomitant]
     Dosage: 20 MG, QD
     Route: 050
  5. CATAPRES                           /00171101/ [Concomitant]
     Dosage: 0.1 MG, UNK
  6. CELEXA [Concomitant]
     Dosage: 2 MG/ML QD
  7. THORAZINE                          /00011902/ [Concomitant]
     Dosage: 7.5 X 10 MG TABLETS IN AM
  8. THORAZINE                          /00011902/ [Concomitant]
     Dosage: 7.5 X 10 MG TABLETS IN EVENING
  9. THORAZINE                          /00011902/ [Concomitant]
     Dosage: 10 X 10MG TABLETS AT BEDTIME
  10. MIRALAX [Concomitant]
     Dosage: 17 G, QD

REACTIONS (1)
  - DRUG INEFFECTIVE [None]
